FAERS Safety Report 9060495 (Version 1)
Quarter: 2013Q1

REPORT INFORMATION
  Report Type: Spontaneous
  Country: FR (occurrence: FR)
  Receive Date: 20130212
  Receipt Date: 20130212
  Transmission Date: 20140127
  Serious: Yes (Death, Other)
  Sender: FDA-Public Use
  Company Number: FR-BRISTOL-MYERS SQUIBB COMPANY-17351255

PATIENT
  Sex: 0

DRUGS (3)
  1. SUSTIVA [Suspect]
  2. TRUVADA [Suspect]
  3. KALETRA [Suspect]

REACTIONS (5)
  - Foetal death [Fatal]
  - Bronchopulmonary dysplasia [Unknown]
  - Congenital anomaly of adrenal gland [Unknown]
  - Dysmorphism [Unknown]
  - Hydrocephalus [Unknown]
